FAERS Safety Report 9783331 (Version 1)
Quarter: 2013Q4

REPORT INFORMATION
  Report Type: Spontaneous
  Country: US (occurrence: US)
  Receive Date: 20131226
  Receipt Date: 20131226
  Transmission Date: 20140711
  Serious: Yes (Other)
  Sender: FDA-Public Use
  Company Number: US-BAYER-2013-156670

PATIENT
  Age: 37 Year
  Sex: Female
  Weight: 58.5 kg

DRUGS (7)
  1. YASMIN [Suspect]
  2. YAZ [Suspect]
  3. BENZAMYCIN [Concomitant]
  4. CIPROFLOXACIN [Concomitant]
     Dosage: 500 MG, BID
     Route: 048
  5. NEURONTIN [Concomitant]
     Dosage: 300 MG, TID
     Route: 048
  6. AMITRIPTYLINE [Concomitant]
     Dosage: 50 MG, Q HS
     Route: 048
  7. MOTRIN [Concomitant]

REACTIONS (1)
  - Deep vein thrombosis [None]
